FAERS Safety Report 17651565 (Version 1)
Quarter: 2020Q2

REPORT INFORMATION
  Report Type: Spontaneous
  Country: US (occurrence: US)
  Receive Date: 20200409
  Receipt Date: 20200409
  Transmission Date: 20200713
  Serious: Yes (Other)
  Sender: FDA-Public Use
  Company Number: None

PATIENT
  Age: 16 Year
  Sex: Female

DRUGS (4)
  1. TOCILIZUMAB. [Suspect]
     Active Substance: TOCILIZUMAB
     Indication: STILL^S DISEASE
  2. ONDANSETRON 4MG [Concomitant]
     Active Substance: ONDANSETRON
  3. CITIRIZINE [Concomitant]
  4. METHYLPREDNISOLONE IV [Concomitant]
     Active Substance: METHYLPREDNISOLONE

REACTIONS (1)
  - Body temperature increased [None]

NARRATIVE: CASE EVENT DATE: 20200319
